FAERS Safety Report 4673843-7 (Version None)
Quarter: 2005Q2

REPORT INFORMATION
  Report Type: 
  Country: None (occurrence: None)
  Receive Date: 20050523
  Receipt Date: 20041118
  Transmission Date: 20051028
  Serious: Yes (Other)
  Sender: FDA-Public Use
  Company Number: 10066038-C626341-1

PATIENT
  Age: 29 Year
  Sex: Female

DRUGS (3)
  1. LACTATED RINGER'S [Suspect]
     Indication: COLONOSCOPY
     Dosage: KVO, I.V.
     Route: 042
     Dates: start: 20041026, end: 20041026
  2. LACTATED RINGER'S [Suspect]
     Indication: PREOPERATIVE CARE
     Dosage: KVO, I.V.
     Route: 042
     Dates: start: 20041026, end: 20041026
  3. .1CC LIDOCAINE [Concomitant]

REACTIONS (3)
  - RASH PRURITIC [None]
  - SNEEZING [None]
  - URTICARIA [None]
